FAERS Safety Report 11733508 (Version 6)
Quarter: 2016Q4

REPORT INFORMATION
  Report Type: Spontaneous
  Country: US (occurrence: US)
  Receive Date: 20151113
  Receipt Date: 20161118
  Transmission Date: 20170206
  Serious: No
  Sender: FDA-Public Use
  Company Number: PHEH2015US022820

PATIENT
  Sex: Female
  Weight: 56.69 kg

DRUGS (3)
  1. ONDANSETRON [Suspect]
     Active Substance: ONDANSETRON
     Indication: VOMITING IN PREGNANCY
     Dosage: 8 MG, PRN
     Route: 065
     Dates: start: 200502, end: 200502
  2. ZOFRAN [Suspect]
     Active Substance: ONDANSETRON HYDROCHLORIDE
     Indication: VOMITING IN PREGNANCY
     Dosage: 8 MG, PRN
     Route: 065
     Dates: start: 2005, end: 2005
  3. ZOFRAN ODT [Suspect]
     Active Substance: ONDANSETRON HYDROCHLORIDE
     Indication: VOMITING IN PREGNANCY
     Dosage: 8 MG, PRN
     Route: 048
     Dates: start: 200501, end: 200503

REACTIONS (7)
  - Pain [Unknown]
  - Maternal exposure during pregnancy [Unknown]
  - Injury [Unknown]
  - Anxiety [Unknown]
  - Anhedonia [Unknown]
  - Emotional distress [Unknown]
  - Product use issue [Unknown]
